FAERS Safety Report 6760375-5 (Version None)
Quarter: 2010Q2

REPORT INFORMATION
  Report Type: 
  Country: None (occurrence: None)
  Receive Date: 20100604
  Receipt Date: 20100526
  Transmission Date: 20101027
  Serious: Yes (Life-Threatening, Hospitalization)
  Sender: FDA-Public Use
  Company Number: 1000013442

PATIENT
  Age: 69 Year
  Sex: Female
  Weight: 85 kg

DRUGS (7)
  1. ESCITALOPRAM [Suspect]
     Indication: DEPRESSION
     Dosage: 10 MG (10 MG, 1 IN 1 D), ORAL
     Route: 048
     Dates: start: 20090601, end: 20091124
  2. ESCITALOPRAM [Suspect]
     Indication: DEPRESSION
     Dosage: ORAL
     Route: 048
     Dates: start: 20090101
  3. VOTUM (TABLETS) [Concomitant]
  4. ASS(100 MILLIGRAM, TABLETS) [Concomitant]
  5. PANTOPRAZOL (40 MILLIGRAM, TABLETS) [Concomitant]
  6. METFORMIN (500 MILLIGRAM, TABLETS) [Concomitant]
  7. LYRICA [Concomitant]

REACTIONS (11)
  - ASPARTATE AMINOTRANSFERASE INCREASED [None]
  - BLOOD CREATININE INCREASED [None]
  - BLOOD PRESSURE INCREASED [None]
  - BLOOD UREA INCREASED [None]
  - BRADYCARDIA [None]
  - CARDIAC ARREST [None]
  - FALL [None]
  - FIBRIN D DIMER INCREASED [None]
  - LONG QT SYNDROME [None]
  - TORSADE DE POINTES [None]
  - VASCULAR ENCEPHALOPATHY [None]
